FAERS Safety Report 19094011 (Version 2)
Quarter: 2021Q2

REPORT INFORMATION
  Report Type: Report from Study
  Country: US (occurrence: US)
  Receive Date: 20210405
  Receipt Date: 20210412
  Transmission Date: 20210717
  Serious: Yes (Death, Hospitalization)
  Sender: FDA-Public Use
  Company Number: US-JNJFOC-20210331794

PATIENT
  Age: 71 Year
  Sex: Female
  Weight: 62.3 kg

DRUGS (3)
  1. COVID?19 VACCINE NOS. [Suspect]
     Active Substance: COVID-19 VACCINE NOS
     Indication: PRODUCT USED FOR UNKNOWN INDICATION
     Route: 065
     Dates: start: 20210311
  2. EPOPROSTENOL SODIUM. [Suspect]
     Active Substance: EPOPROSTENOL SODIUM
     Indication: PULMONARY HYPERTENSION
     Dosage: VELETRI 1.5 MG VIAL INTRAVENOUS CONTINUOUS
     Route: 042
  3. ELIQUIS [Concomitant]
     Active Substance: APIXABAN
     Indication: PRODUCT USED FOR UNKNOWN INDICATION
     Route: 065

REACTIONS (14)
  - Death [Fatal]
  - Hospitalisation [Unknown]
  - Pyrexia [Unknown]
  - Nausea [Unknown]
  - Epistaxis [Unknown]
  - Chest pain [Unknown]
  - Oedema peripheral [Unknown]
  - Pain in jaw [Unknown]
  - Decreased appetite [Unknown]
  - Oxygen consumption increased [Unknown]
  - Fluid retention [Unknown]
  - Myalgia [Unknown]
  - Diarrhoea [Unknown]
  - Pain [Unknown]

NARRATIVE: CASE EVENT DATE: 20210311
